FAERS Safety Report 5302233-9 (Version None)
Quarter: 2007Q2

REPORT INFORMATION
  Report Type: 
  Country: None (occurrence: None)
  Receive Date: 20070419
  Receipt Date: 20060413
  Transmission Date: 20071010
  Serious: Yes (Hospitalization)
  Sender: FDA-Public Use
  Company Number: US-GLAXOSMITHKLINE-A0601667A

PATIENT
  Age: 20 Year
  Sex: Female

DRUGS (5)
  1. ESKALITH [Suspect]
     Route: 048
  2. LITHIUM CARBONATE [Suspect]
     Route: 048
     Dates: start: 19860101, end: 19960101
  3. LITHIUM CARBONATE [Suspect]
     Dosage: 450MG TWICE PER DAY
     Route: 048
     Dates: start: 20050101, end: 20050101
  4. KLONOPIN [Concomitant]
     Dates: end: 19960101
  5. PRESCRIPTION MEDICATION UNKNOWN [Concomitant]

REACTIONS (2)
  - PERFORMANCE STATUS DECREASED [None]
  - TREMOR [None]
